FAERS Safety Report 10433493 (Version 2)
Quarter: 2014Q4

REPORT INFORMATION
  Report Type: Spontaneous
  Country: US (occurrence: US)
  Receive Date: 20140905
  Receipt Date: 20141017
  Transmission Date: 20150528
  Serious: No
  Sender: FDA-Public Use
  Company Number: US-PFIZER INC-2014247016

PATIENT
  Age: 54 Year
  Sex: Male
  Weight: 125 kg

DRUGS (2)
  1. ADVIL PM [Suspect]
     Active Substance: DIPHENHYDRAMINE CITRATE\IBUPROFEN
     Indication: PAIN IN EXTREMITY
     Dosage: UNK
     Dates: start: 20140902
  2. ADVIL PM [Suspect]
     Active Substance: DIPHENHYDRAMINE CITRATE\IBUPROFEN
     Indication: SLEEP DISORDER

REACTIONS (4)
  - Feeling hot [Unknown]
  - Poor quality drug administered [Unknown]
  - Oral discomfort [Unknown]
  - Product physical issue [Unknown]

NARRATIVE: CASE EVENT DATE: 20140902
